FAERS Safety Report 6293786-5 (Version None)
Quarter: 2009Q3

REPORT INFORMATION
  Report Type: 
  Country: None (occurrence: None)
  Receive Date: 20090731
  Receipt Date: 20090731
  Transmission Date: 20100115
  Serious: Yes (Other)
  Sender: FDA-Public Use
  Company Number: None

PATIENT
  Sex: Female
  Weight: 86.1834 kg

DRUGS (1)
  1. LAMOTRIGINE [Suspect]
     Dosage: 300MG DAILY PO
     Route: 048
     Dates: start: 20090521, end: 20090713

REACTIONS (3)
  - AGITATION [None]
  - AKATHISIA [None]
  - RESTLESSNESS [None]
